FAERS Safety Report 7311624-6 (Version None)
Quarter: 2011Q1

REPORT INFORMATION
  Report Type: 
  Country: None (occurrence: None)
  Receive Date: 20110224
  Receipt Date: 20110217
  Transmission Date: 20110831
  Serious: Yes (Hospitalization, Other)
  Sender: FDA-Public Use
  Company Number: US-US-EMD SERONO, INC.-7003932

PATIENT
  Sex: Female
  Weight: 57 kg

DRUGS (5)
  1. REBIF [Suspect]
     Indication: MULTIPLE SCLEROSIS
     Route: 058
     Dates: start: 20100303
  2. DARVOCET [Concomitant]
     Route: 048
  3. SEROQUEL [Concomitant]
     Route: 048
  4. CYMBALTA [Concomitant]
     Route: 048
  5. PREDNISONE [Concomitant]
     Route: 048

REACTIONS (6)
  - DEPRESSION [None]
  - HEPATIC ENZYME ABNORMAL [None]
  - OPTIC NEURITIS [None]
  - FIBROMYALGIA [None]
  - FATIGUE [None]
  - INJECTION SITE HAEMATOMA [None]
